FAERS Safety Report 16527283 (Version 2)
Quarter: 2019Q3

REPORT INFORMATION
  Report Type: Spontaneous
  Country: US (occurrence: US)
  Receive Date: 20190704
  Receipt Date: 20190724
  Transmission Date: 20191004
  Serious: Yes (Life-Threatening, Hospitalization)
  Sender: FDA-Public Use
  Company Number: US-TEVA-2019-US-1070380

PATIENT
  Age: 12 Year
  Sex: Male

DRUGS (2)
  1. LISDEXAMPHETAMINE [Concomitant]
     Active Substance: LISDEXAMFETAMINE
     Route: 048
  2. BUPROPION. [Suspect]
     Active Substance: BUPROPION
     Indication: PRODUCT USED FOR UNKNOWN INDICATION
     Route: 048

REACTIONS (9)
  - Seizure [Unknown]
  - Cardiogenic shock [Recovering/Resolving]
  - Bradycardia [Recovering/Resolving]
  - Overdose [Unknown]
  - Hypotension [Recovering/Resolving]
  - Torsade de pointes [Recovering/Resolving]
  - Cardiac arrest [Recovering/Resolving]
  - Tachyarrhythmia [Recovering/Resolving]
  - Arrhythmia [Recovering/Resolving]
